FAERS Safety Report 10880715 (Version 1)
Quarter: 2015Q1

REPORT INFORMATION
  Report Type: Spontaneous
  Country: FR (occurrence: None)
  Receive Date: 20150226
  Receipt Date: 20150226
  Transmission Date: 20150721
  Serious: Yes (Death)
  Sender: FDA-Public Use
  Company Number: HX-PM-FR-150200001

PATIENT
  Age: 66 Year
  Sex: Male
  Weight: 75 kg

DRUGS (5)
  1. PARACETAMOL (PARACETAMOL) [Suspect]
     Active Substance: ACETAMINOPHEN
     Dosage: 4 GRAM (1 GM, 1 IN 6 HR) INTRAVENOUS
     Route: 042
     Dates: start: 20140606
  2. XANAX [Suspect]
     Active Substance: ALPRAZOLAM
     Route: 048
  3. CYSVIEW [Suspect]
     Active Substance: HEXAMINOLEVULINATE HYDROCHLORIDE
     Indication: TRANSURETHRAL BLADDER RESECTION
     Route: 043
     Dates: start: 20140606
  4. IMOVANE [Suspect]
     Active Substance: ZOPICLONE
     Route: 048
     Dates: start: 20140605, end: 20140605
  5. LOVENOX [Suspect]
     Active Substance: ENOXAPARIN SODIUM
     Indication: THROMBOSIS PROPHYLAXIS
     Route: 058
     Dates: start: 20140606, end: 20140607

REACTIONS (4)
  - Cardio-respiratory arrest [None]
  - Cardiac arrest [None]
  - Tachycardia [None]
  - Mydriasis [None]

NARRATIVE: CASE EVENT DATE: 20140606
